FAERS Safety Report 8097285-X (Version None)
Quarter: 2012Q1

REPORT INFORMATION
  Report Type: 
  Country: None (occurrence: None)
  Receive Date: 20120128
  Receipt Date: 20110629
  Transmission Date: 20120608
  Serious: No
  Sender: FDA-Public Use
  Company Number: US-ABBOTT-11P-163-0835210-00

PATIENT
  Sex: Female

DRUGS (3)
  1. HUMIRA [Suspect]
     Indication: CROHN'S DISEASE
     Dosage: DAY ONE
     Route: 058
     Dates: start: 20110618
  2. UNKNOWN MEDICATION [Concomitant]
     Indication: PAIN
  3. PENTASA [Concomitant]
     Indication: INFLAMMATION

REACTIONS (1)
  - NAUSEA [None]
